FAERS Safety Report 6119529-3 (Version None)
Quarter: 2009Q1

REPORT INFORMATION
  Report Type: 
  Country: None (occurrence: None)
  Receive Date: 20090316
  Receipt Date: 20090309
  Transmission Date: 20090719
  Serious: Yes (Other)
  Sender: FDA-Public Use
  Company Number: A0773257A

PATIENT
  Sex: Female

DRUGS (12)
  1. ADVAIR HFA [Suspect]
     Indication: DRUG USE FOR UNKNOWN INDICATION
     Route: 055
  2. COMPAZINE [Suspect]
     Indication: DRUG USE FOR UNKNOWN INDICATION
     Route: 065
  3. IMITREX [Suspect]
     Indication: DRUG USE FOR UNKNOWN INDICATION
     Route: 065
  4. TALWIN [Suspect]
     Indication: DRUG USE FOR UNKNOWN INDICATION
     Route: 065
  5. VICODIN [Suspect]
     Indication: DRUG USE FOR UNKNOWN INDICATION
     Route: 065
  6. REGLAN [Suspect]
     Indication: DRUG USE FOR UNKNOWN INDICATION
     Route: 065
  7. ATIVAN [Suspect]
     Indication: DRUG USE FOR UNKNOWN INDICATION
     Route: 065
  8. ULTRAM [Suspect]
     Indication: DRUG USE FOR UNKNOWN INDICATION
     Route: 065
  9. LORTAB [Suspect]
     Indication: DRUG USE FOR UNKNOWN INDICATION
     Route: 065
  10. TORADOL [Suspect]
     Indication: DRUG USE FOR UNKNOWN INDICATION
     Route: 065
  11. UNSPECIFIED MEDICATION [Suspect]
     Indication: DRUG USE FOR UNKNOWN INDICATION
     Route: 065
  12. MORPHINE [Suspect]
     Indication: DRUG USE FOR UNKNOWN INDICATION
     Route: 065

REACTIONS (13)
  - AGGRESSION [None]
  - ANAPHYLACTIC REACTION [None]
  - BLOOD PRESSURE INCREASED [None]
  - DYSPNOEA [None]
  - MUSCLE DISORDER [None]
  - MUSCLE TIGHTNESS [None]
  - NAUSEA [None]
  - PRURITUS [None]
  - SWELLING [None]
  - THROAT TIGHTNESS [None]
  - TREMOR [None]
  - URTICARIA [None]
  - VOMITING [None]
